FAERS Safety Report 4501820-5 (Version None)
Quarter: 2004Q4

REPORT INFORMATION
  Report Type: 
  Country: None (occurrence: None)
  Receive Date: 20041115
  Receipt Date: 20041115
  Transmission Date: 20050328
  Serious: Yes (Life-Threatening, Hospitalization)
  Sender: FDA-Public Use
  Company Number: None

PATIENT
  Age: 56 Year
  Sex: Male
  Weight: 99.8 kg

DRUGS (1)
  1. ASPIRIN [Suspect]

REACTIONS (2)
  - GASTRIC ULCER [None]
  - GASTRITIS [None]
